FAERS Safety Report 21947102 (Version 1)
Quarter: 2023Q1

REPORT INFORMATION
  Report Type: Report from Study
  Country: BR (occurrence: BR)
  Receive Date: 20230202
  Receipt Date: 20230202
  Transmission Date: 20230417
  Serious: Yes (Other)
  Sender: FDA-Public Use
  Company Number: BR-BAYER-2023A010884

PATIENT
  Age: 71 Year
  Sex: Female

DRUGS (3)
  1. NEXAVAR [Suspect]
     Active Substance: SORAFENIB
     Indication: Hepatocellular carcinoma
     Dosage: 4 DF, QD
     Dates: start: 202211
  2. LOSARTAN [Concomitant]
     Active Substance: LOSARTAN
     Indication: Hypertension
     Dosage: 50 MG, QD
  3. LOPERAMIDE [Concomitant]
     Active Substance: LOPERAMIDE
     Indication: Diarrhoea
     Dosage: IF EXPERIENCE MORE THAN 3 DIARRHEA EPISODES PER DAY, CAN TAKE UP TO 8 DF QD
     Dates: start: 202211

REACTIONS (10)
  - Dysentery [Recovering/Resolving]
  - Blood pressure increased [Recovering/Resolving]
  - Abdominal pain [Recovering/Resolving]
  - Chills [Recovering/Resolving]
  - Weight decreased [None]
  - Asthenia [None]
  - Haemoptysis [None]
  - Malaise [None]
  - Pain in extremity [Recovering/Resolving]
  - Pain [None]

NARRATIVE: CASE EVENT DATE: 20221101
